FAERS Safety Report 20624893 (Version 1)
Quarter: 2022Q1

REPORT INFORMATION
  Report Type: Spontaneous
  Country: CN (occurrence: CN)
  Receive Date: 20220323
  Receipt Date: 20220323
  Transmission Date: 20220423
  Serious: Yes (Other)
  Sender: FDA-Public Use
  Company Number: CN-009507513-2203CHN006344

PATIENT
  Age: 89 Year
  Sex: Male
  Weight: 70 kg

DRUGS (1)
  1. CILASTATIN SODIUM\IMIPENEM [Suspect]
     Active Substance: CILASTATIN SODIUM\IMIPENEM
     Indication: Pneumonia
     Dosage: 1 G, Q8H
     Route: 041
     Dates: start: 20220225, end: 20220302

REACTIONS (4)
  - Coma [Unknown]
  - Muscle twitching [Recovering/Resolving]
  - Blood pressure increased [Unknown]
  - Heart rate increased [Unknown]

NARRATIVE: CASE EVENT DATE: 20220301
